FAERS Safety Report 9178501 (Version 1)
Quarter: 2012Q4

REPORT INFORMATION
  Report Type: 
  Country: SE (occurrence: SE)
  Receive Date: 20121029
  Receipt Date: 20121029
  Transmission Date: 20130627
  Serious: Yes (Hospitalization, Other)
  Sender: FDA-Public Use
  Company Number: PHHY2008SE07814

PATIENT
  Sex: Female

DRUGS (21)
  1. CERTICAN [Suspect]
     Indication: LUNG TRANSPLANT
     Dosage: 0.5 mg with a dosage of 2 mg daily
     Route: 048
     Dates: start: 20071110, end: 20080229
  2. SANDIMMUN NEORAL [Concomitant]
     Dosage: 25 mg, UNK
  3. CELLCEPT [Concomitant]
     Dosage: 500 mg, UNK
  4. AZITROMAX [Concomitant]
     Dosage: 250 mg, UNK
  5. CALCICHEW D3 [Concomitant]
     Dosage: 500 mg/ 400 IE
  6. IMIGRAN [Concomitant]
     Dosage: 50 mg, UNK
  7. PANODIL [Concomitant]
     Dosage: 500 mg, UNK
  8. PROPAVAN [Concomitant]
     Dosage: 25 mg, UNK
  9. E-VIMIN [Concomitant]
     Dosage: 100 mg, UNK
  10. IMPUGAN [Concomitant]
     Dosage: 40 mg, UNK
  11. PREDNISOLON [Concomitant]
     Dosage: 5 mg, UNK
  12. BACTRIM FORTE [Concomitant]
     Dosage: 800 mg/160 mg
  13. EMGESAN [Concomitant]
     Dosage: 250 mg, UNK
  14. CARDIZEM [Concomitant]
     Dosage: 90 mg, UNK
  15. PRAVACHOL [Concomitant]
     Dosage: 20 mg, UNK
  16. ZOLOFT [Concomitant]
     Dosage: 100 mg, UNK
  17. NEXIUM [Concomitant]
     Dosage: 20 mg, UNK
  18. GLOBULIN [Concomitant]
  19. EVEROLIMUS [Concomitant]
  20. CICLOSPORIN A [Concomitant]
  21. MYCOPHENOLATE MOFETIL [Concomitant]

REACTIONS (4)
  - Interstitial lung disease [Not Recovered/Not Resolved]
  - Total lung capacity decreased [Not Recovered/Not Resolved]
  - Infection [Not Recovered/Not Resolved]
  - Glomerular filtration rate decreased [Not Recovered/Not Resolved]
